FAERS Safety Report 11868965 (Version 3)
Quarter: 2016Q1

REPORT INFORMATION
  Report Type: Spontaneous
  Country: US (occurrence: US)
  Receive Date: 20151225
  Receipt Date: 20160302
  Transmission Date: 20160526
  Serious: No
  Sender: FDA-Public Use
  Company Number: PHEH2015US027042

PATIENT
  Age: 72 Year
  Sex: Female
  Weight: 104.5 kg

DRUGS (1)
  1. SANDOSTATIN LAR DEPOT [Suspect]
     Active Substance: OCTREOTIDE ACETATE
     Indication: CARCINOID TUMOUR
     Dosage: 30 MG, QD
     Route: 030
     Dates: start: 20101025

REACTIONS (4)
  - Wrong technique in product usage process [Not Recovered/Not Resolved]
  - Syringe issue [Recovered/Resolved]
  - Underdose [Recovered/Resolved]
  - Product quality issue [Unknown]

NARRATIVE: CASE EVENT DATE: 20151119
